FAERS Safety Report 5447428-9 (Version None)
Quarter: 2007Q3

REPORT INFORMATION
  Report Type: 
  Country: None (occurrence: None)
  Receive Date: 20070905
  Receipt Date: 20070821
  Transmission Date: 20080115
  Serious: Yes (Life-Threatening)
  Sender: FDA-Public Use
  Company Number: OSCN-NO-0708S-0336

PATIENT
  Age: 72 Year
  Sex: Male

DRUGS (2)
  1. OMNISCAN [Suspect]
     Indication: DRUG USE FOR UNKNOWN INDICATION
     Dosage: 10 ML, SINGLE DOSE, I.V.
     Route: 042
     Dates: start: 20070820, end: 20070820
  2. SODIUM CHLORIDE [Concomitant]

REACTIONS (5)
  - BLOOD PRESSURE SYSTOLIC DECREASED [None]
  - BLOOD PRESSURE SYSTOLIC INCREASED [None]
  - CONVULSION [None]
  - COUGH [None]
  - NAUSEA [None]
